FAERS Safety Report 9041451 (Version 1)
Quarter: 2013Q1

REPORT INFORMATION
  Report Type: Spontaneous
  Country: US (occurrence: None)
  Receive Date: 20130128
  Receipt Date: 20130128
  Transmission Date: 20140127
  Serious: Yes (Other)
  Sender: FDA-Public Use
  Company Number: None

PATIENT
  Age: 23 Year
  Sex: Female
  Weight: 70.76 kg

DRUGS (1)
  1. PAROXETINE [Suspect]
     Indication: HEADACHE

REACTIONS (6)
  - Drug withdrawal syndrome [None]
  - Vision blurred [None]
  - Acne [None]
  - Sexual dysfunction [None]
  - Anxiety [None]
  - Heart rate increased [None]
